FAERS Safety Report 17823103 (Version 1)
Quarter: 2020Q2

REPORT INFORMATION
  Report Type: Spontaneous
  Country: US (occurrence: US)
  Receive Date: 20200523
  Receipt Date: 20200523
  Transmission Date: 20200714
  Serious: Yes (Life-Threatening)
  Sender: FDA-Public Use
  Company Number: None

PATIENT
  Age: 66 Year
  Sex: Male
  Weight: 135.62 kg

DRUGS (13)
  1. INSULIN LISPRO [Concomitant]
     Active Substance: INSULIN LISPRO
     Dates: start: 20200513, end: 20200518
  2. METHYLPREDNISOLONE. [Concomitant]
     Active Substance: METHYLPREDNISOLONE
     Dates: start: 20200510, end: 20200519
  3. PROTONIX [Concomitant]
     Active Substance: PANTOPRAZOLE SODIUM
     Dates: start: 20200515
  4. ATIVAN [Concomitant]
     Active Substance: LORAZEPAM
     Dates: start: 20200513
  5. ASPIRIN. [Concomitant]
     Active Substance: ASPIRIN
     Dates: start: 20200510, end: 20200518
  6. LOVENOX [Concomitant]
     Active Substance: ENOXAPARIN SODIUM
     Dates: start: 20200517, end: 20200518
  7. VERSED [Concomitant]
     Active Substance: MIDAZOLAM HYDROCHLORIDE
     Dates: start: 20200518, end: 20200518
  8. REMDESIVIR. [Suspect]
     Active Substance: REMDESIVIR
     Indication: COVID-19
     Route: 042
     Dates: start: 20200516, end: 20200518
  9. ATIVAN [Concomitant]
     Active Substance: LORAZEPAM
     Dates: end: 20200518
  10. DILTIAZEM. [Concomitant]
     Active Substance: DILTIAZEM
     Dates: start: 20200511, end: 20200518
  11. ATARAX [Concomitant]
     Active Substance: HYDROXYZINE HYDROCHLORIDE
     Dates: start: 20200517, end: 20200518
  12. KETAMINE [Concomitant]
     Active Substance: KETAMINE
     Dates: start: 20200513, end: 20200513
  13. FENTANYL. [Concomitant]
     Active Substance: FENTANYL
     Dates: start: 20200518

REACTIONS (9)
  - Gastrointestinal haemorrhage [None]
  - Blood creatine increased [None]
  - Hepatic failure [None]
  - Dialysis [None]
  - Hypovolaemic shock [None]
  - Shock haemorrhagic [None]
  - Liver function test increased [None]
  - Glomerular filtration rate decreased [None]
  - Acute kidney injury [None]

NARRATIVE: CASE EVENT DATE: 20200519
